FAERS Safety Report 19900817 (Version 1)
Quarter: 2021Q3

REPORT INFORMATION
  Report Type: Spontaneous
  Country: US (occurrence: US)
  Receive Date: 20210929
  Receipt Date: 20210929
  Transmission Date: 20211014
  Serious: No
  Sender: FDA-Public Use
  Company Number: US-JNJFOC-20210931628

PATIENT
  Sex: Female

DRUGS (1)
  1. MENS ROGAINE EXTRA STRENGTH [Suspect]
     Active Substance: MINOXIDIL
     Indication: ALOPECIA
     Dosage: PRODUCT START AND STOP DATE?20 YEARS AGO OR MORE AND USED UNTIL ABOUT 4 YEARS
     Route: 065

REACTIONS (3)
  - Intentional product misuse [Unknown]
  - Hair colour changes [Recovered/Resolved]
  - Product use issue [Unknown]
